FAERS Safety Report 13272502 (Version 1)
Quarter: 2017Q1

REPORT INFORMATION
  Report Type: Spontaneous
  Country: US (occurrence: US)
  Receive Date: 20170225
  Receipt Date: 20170225
  Transmission Date: 20170428
  Serious: Yes (Hospitalization)
  Sender: FDA-Public Use
  Company Number: None

PATIENT
  Age: 64 Year
  Sex: Male
  Weight: 65.25 kg

DRUGS (5)
  1. METHYLPREDNISOLONE TABLETS 4MG [Suspect]
     Active Substance: METHYLPREDNISOLONE
     Indication: ASTHMA
     Dosage: QUANTITY:21 TABLET(S);OTHER FREQUENCY:6TAB DAY1, SO ON;?
     Route: 048
     Dates: start: 20170217, end: 20170222
  2. VITAMIN D3 [Concomitant]
     Active Substance: CHOLECALCIFEROL
  3. NIACIN. [Concomitant]
     Active Substance: NIACIN
  4. METHYLPREDNISOLONE TABLETS 4MG [Suspect]
     Active Substance: METHYLPREDNISOLONE
     Indication: SINUS DISORDER
     Dosage: QUANTITY:21 TABLET(S);OTHER FREQUENCY:6TAB DAY1, SO ON;?
     Route: 048
     Dates: start: 20170217, end: 20170222
  5. MILK THISTLE EXTRACT [Concomitant]

REACTIONS (4)
  - Troponin increased [None]
  - Flushing [None]
  - Chest discomfort [None]
  - Myocardial infarction [None]

NARRATIVE: CASE EVENT DATE: 20170222
